FAERS Safety Report 4621362-6 (Version None)
Quarter: 2005Q1

REPORT INFORMATION
  Report Type: 
  Country: None (occurrence: None)
  Receive Date: 20050328
  Receipt Date: 20050314
  Transmission Date: 20050727
  Serious: Yes (Death)
  Sender: FDA-Public Use
  Company Number: 2005044824

PATIENT
  Age: 32 Year
  Sex: Male

DRUGS (2)
  1. GUAIPHENESIN/DEXTROMETHORPHAN (DEXTROMETHORPHAN, GUAIFENESIN) [Suspect]
     Indication: INTENTIONAL MISUSE
     Dosage: ORAL
     Route: 048
  2. ACETYLSALICYLIC ACID (ACETYLSALICYLIC ACID) (ACETYLSALICYLIC ACID) [Suspect]
     Indication: INTENTIONAL MISUSE
     Dosage: ORAL
     Route: 048

REACTIONS (10)
  - BLOOD CREATINE PHOSPHOKINASE INCREASED [None]
  - CARDIAC ARREST [None]
  - DEPRESSED LEVEL OF CONSCIOUSNESS [None]
  - EJECTION FRACTION DECREASED [None]
  - HYPOTENSION [None]
  - INTERNATIONAL NORMALISED RATIO INCREASED [None]
  - METABOLIC ACIDOSIS [None]
  - PNEUMONIA ASPIRATION [None]
  - RESPIRATORY FAILURE [None]
  - THERAPY NON-RESPONDER [None]
